FAERS Safety Report 7782494-7 (Version None)
Quarter: 2011Q3

REPORT INFORMATION
  Report Type: 
  Country: None (occurrence: None)
  Receive Date: 20110928
  Receipt Date: 20110915
  Transmission Date: 20111222
  Serious: Yes (Hospitalization, Other)
  Sender: FDA-Public Use
  Company Number: HK-RANBAXY-2011RR-48390

PATIENT
  Age: 30 Year
  Sex: Female

DRUGS (1)
  1. ACETAMINOPHEN [Suspect]
     Indication: SUICIDE ATTEMPT
     Dosage: 150 G, UNK
     Route: 048

REACTIONS (6)
  - LIVER DISORDER [None]
  - SHOCK [None]
  - ACIDOSIS [None]
  - METABOLIC ACIDOSIS [None]
  - COAGULOPATHY [None]
  - OVERDOSE [None]
